FAERS Safety Report 14261569 (Version 1)
Quarter: 2017Q4

REPORT INFORMATION
  Report Type: Spontaneous
  Country: DE (occurrence: DE)
  Receive Date: 20171208
  Receipt Date: 20171208
  Transmission Date: 20180321
  Serious: Yes (Other)
  Sender: FDA-Public Use
  Company Number: DE-TEVA-2017-DE-830731

PATIENT
  Age: 71 Year
  Sex: Male

DRUGS (2)
  1. TS-1 [Suspect]
     Active Substance: GIMERACIL\OTERACIL\TEGAFUR
     Indication: OESOPHAGEAL ADENOCARCINOMA
     Dosage: TWO 4-WEEK CYCLES, THEN 2 CYCLES BETWEEN FEB AND MAR 2017
     Route: 065
  2. CISPLATIN. [Suspect]
     Active Substance: CISPLATIN
     Indication: OESOPHAGEAL ADENOCARCINOMA
     Dosage: TWO 4-WEEK CYCLES, THEN 2 CYCLES BETWEEN FEB AND MAR 2017
     Route: 042

REACTIONS (6)
  - Thrombocytopenia [Unknown]
  - Dysgeusia [Recovered/Resolved]
  - Vomiting [Recovered/Resolved]
  - Nausea [Unknown]
  - Weight decreased [Unknown]
  - Decreased appetite [Recovered/Resolved]
